FAERS Safety Report 23409457 (Version 6)
Quarter: 2025Q4

REPORT INFORMATION
  Report Type: Report from Study
  Country: CA (occurrence: CA)
  Receive Date: 20240117
  Receipt Date: 20251124
  Transmission Date: 20260118
  Serious: Yes (Other)
  Sender: OTSUKA
  Company Number: CA-OTSUKA-2023_030467

PATIENT
  Age: 33 Year
  Sex: Male

DRUGS (3)
  1. TOLVAPTAN [Suspect]
     Active Substance: TOLVAPTAN
     Indication: Congenital cystic kidney disease
     Dosage: 60 MG, DAILY
     Dates: start: 20231104, end: 20240108
  2. TOLVAPTAN [Suspect]
     Active Substance: TOLVAPTAN
     Dosage: 30 MG, QD (IN THE MORNING/EVERY MORNING)
     Dates: start: 20240729
  3. TOLVAPTAN [Suspect]
     Active Substance: TOLVAPTAN
     Dosage: 15 MG, QD (IN THE EVENING/EVERY EVENING)
     Dates: start: 20240729

REACTIONS (10)
  - Food craving [Not Recovered/Not Resolved]
  - Throat irritation [Not Recovered/Not Resolved]
  - Nocturia [Not Recovered/Not Resolved]
  - Polydipsia [Unknown]
  - Thirst [Unknown]
  - Libido decreased [Unknown]
  - Malaise [Unknown]
  - Alanine aminotransferase increased [Not Recovered/Not Resolved]
  - Underdose [Unknown]
  - Product dose omission in error [Unknown]

NARRATIVE: CASE EVENT DATE: 20231120
